FAERS Safety Report 4907009-X (Version None)
Quarter: 2006Q1

REPORT INFORMATION
  Report Type: 
  Country: None (occurrence: None)
  Receive Date: 20060207
  Receipt Date: 20060125
  Transmission Date: 20060701
  Serious: Yes (Hospitalization)
  Sender: FDA-Public Use
  Company Number: 2006PV007600

PATIENT
  Age: 72 Year
  Sex: Female
  Weight: 93.8946 kg

DRUGS (17)
  1. BYETTA [Suspect]
     Indication: DIABETES MELLITUS NON-INSULIN-DEPENDENT
     Dosage: 10 MCG; BID; SC; 5 MCG; BID; SC
     Route: 058
     Dates: start: 20051128, end: 20051227
  2. BYETTA [Suspect]
     Indication: DIABETES MELLITUS NON-INSULIN-DEPENDENT
     Dosage: 10 MCG; BID; SC; 5 MCG; BID; SC
     Route: 058
     Dates: start: 20051228
  3. LANTUS [Concomitant]
  4. HUMALOG [Concomitant]
  5. CARDIZEM [Concomitant]
  6. DIAVAN [Concomitant]
  7. ASPIRIN [Concomitant]
  8. ZOLOFT [Concomitant]
  9. LIPITOR [Concomitant]
  10. NEXIUM [Concomitant]
  11. PRIMIDONE [Concomitant]
  12. LEVOXYL [Concomitant]
  13. CELEBREX [Concomitant]
  14. FENTANYL CITRATE [Concomitant]
  15. CALCIUM GLUCONATE [Concomitant]
  16. ASCORBIC ACID [Concomitant]
  17. OCUVITE [Concomitant]

REACTIONS (4)
  - DYSSTASIA [None]
  - SYNCOPE [None]
  - TRANSIENT ISCHAEMIC ATTACK [None]
  - VISUAL DISTURBANCE [None]
